FAERS Safety Report 4958005-8 (Version None)
Quarter: 2006Q1

REPORT INFORMATION
  Report Type: 
  Country: None (occurrence: None)
  Receive Date: 20060330
  Receipt Date: 20060208
  Transmission Date: 20060701
  Serious: No
  Sender: FDA-Public Use
  Company Number: US-BRISTOL-MYERS SQUIBB COMPANY-13279302

PATIENT
  Age: 40 Year
  Sex: Male

DRUGS (2)
  1. REYATAZ [Suspect]
  2. TRUVADA [Concomitant]

REACTIONS (1)
  - RESTLESS LEGS SYNDROME [None]
